FAERS Safety Report 23664967 (Version 1)
Quarter: 2024Q1

REPORT INFORMATION
  Report Type: Other
  Country: IE (occurrence: IE)
  Receive Date: 20240322
  Receipt Date: 20240322
  Transmission Date: 20240409
  Serious: Yes (Congenital Anomaly, Other)
  Sender: FDA-Public Use
  Company Number: IE-Merck Healthcare KGaA-2024015303

PATIENT
  Sex: Female
  Weight: 1 kg

DRUGS (3)
  1. METFORMIN HYDROCHLORIDE [Suspect]
     Active Substance: METFORMIN HYDROCHLORIDE
     Indication: Diabetes mellitus
     Dosage: PRODUCT TAKEN BY MOTHER
     Route: 064
  2. INSULIN NOS [Concomitant]
     Active Substance: INSULIN NOS
     Indication: Diabetes mellitus
     Dosage: PRODUCT TAKEN BY MOTHER
  3. FOLIC ACID [Concomitant]
     Active Substance: FOLIC ACID
     Indication: Product used for unknown indication
     Dosage: PRODUCT TAKEN BY MOTHER

REACTIONS (7)
  - Premature baby [Recovered/Resolved]
  - Ventricular septal defect [Unknown]
  - Pulmonary hypoplasia [Unknown]
  - Hyperinsulinaemic hypoglycaemia [Unknown]
  - Developmental delay [Unknown]
  - Autism spectrum disorder [Unknown]
  - Foetal exposure during pregnancy [Recovered/Resolved]
